FAERS Safety Report 7683098-7 (Version None)
Quarter: 2011Q3

REPORT INFORMATION
  Report Type: 
  Country: None (occurrence: None)
  Receive Date: 20110815
  Receipt Date: 20110802
  Transmission Date: 20111222
  Serious: Yes (Hospitalization)
  Sender: FDA-Public Use
  Company Number: GB-ELI_LILLY_AND_COMPANY-GB201108001405

PATIENT
  Sex: Male

DRUGS (1)
  1. OLANZAPINE [Suspect]
     Dosage: 300 MG, UNKNOWN
     Route: 065

REACTIONS (1)
  - MENTAL STATUS CHANGES [None]
